FAERS Safety Report 11076046 (Version 1)
Quarter: 2015Q2

REPORT INFORMATION
  Report Type: Spontaneous
  Country: ES (occurrence: ES)
  Receive Date: 20150429
  Receipt Date: 20150429
  Transmission Date: 20150821
  Serious: Yes (Death)
  Sender: FDA-Public Use
  Company Number: ES-CIPLA LTD.-2015ES03312

PATIENT

DRUGS (13)
  1. VINBLASTINE [Suspect]
     Active Substance: VINBLASTINE
     Indication: HIV INFECTION
  2. CYCLOPHOSPHAMIDE. [Suspect]
     Active Substance: CYCLOPHOSPHAMIDE
     Indication: HIV INFECTION
  3. CISPLATIN. [Suspect]
     Active Substance: CISPLATIN
     Indication: HIV INFECTION
  4. TRASTUZUMAB [Suspect]
     Active Substance: TRASTUZUMAB
     Indication: HIV INFECTION
  5. FLUOROURACIL. [Suspect]
     Active Substance: FLUOROURACIL
     Indication: HIV INFECTION
  6. CETUXIMAB [Suspect]
     Active Substance: CETUXIMAB
     Indication: HIV INFECTION
  7. RITUXIMAB [Suspect]
     Active Substance: RITUXIMAB
     Indication: HIV INFECTION
  8. IFOSFAMIDE. [Suspect]
     Active Substance: IFOSFAMIDE
     Indication: HIV INFECTION
  9. CARBOPLATIN. [Suspect]
     Active Substance: CARBOPLATIN
     Indication: HIV INFECTION
  10. GEMCITABINE [Suspect]
     Active Substance: GEMCITABINE\GEMCITABINE HYDROCHLORIDE
     Indication: HIV INFECTION
  11. VINCRISTINE [Suspect]
     Active Substance: VINCRISTINE
     Indication: HIV INFECTION
  12. DOXORUBICIN [Suspect]
     Active Substance: DOXORUBICIN
     Indication: HIV INFECTION
  13. RALTEGRAVIR [Suspect]
     Active Substance: RALTEGRAVIR
     Indication: HIV INFECTION
     Dosage: 40 MG, BID

REACTIONS (1)
  - Disease progression [Fatal]
